FAERS Safety Report 10616886 (Version 2)
Quarter: 2014Q4

REPORT INFORMATION
  Report Type: Spontaneous
  Country: US (occurrence: US)
  Receive Date: 20141201
  Receipt Date: 20141217
  Transmission Date: 20150529
  Serious: Yes (Other)
  Sender: FDA-Public Use
  Company Number: US-PFIZER INC-2014327458

PATIENT
  Sex: Male
  Weight: 97.5 kg

DRUGS (5)
  1. TIKOSYN [Suspect]
     Active Substance: DOFETILIDE
     Indication: VENTRICULAR TACHYCARDIA
  2. METOPROLOL [Concomitant]
     Active Substance: METOPROLOL
     Indication: BLOOD PRESSURE ABNORMAL
     Dosage: 100 MG, 3X/DAY
     Route: 048
  3. SIMVASTATIN. [Concomitant]
     Active Substance: SIMVASTATIN
     Dosage: 40 MG, 1X/DAY
     Route: 048
  4. LISINOPRIL. [Concomitant]
     Active Substance: LISINOPRIL
     Indication: HEART RATE INCREASED
     Dosage: 10 MG, 1X/DAY
     Route: 048
  5. TIKOSYN [Suspect]
     Active Substance: DOFETILIDE
     Indication: ATRIAL FIBRILLATION
     Dosage: 500 MCG, 2X/DAY
     Route: 048
     Dates: start: 200306

REACTIONS (9)
  - Pharyngeal oedema [Unknown]
  - Intentional product misuse [Unknown]
  - Pharyngitis [Unknown]
  - Oesophagitis [Unknown]
  - Cough [Unknown]
  - Foreign body [Unknown]
  - Retching [Unknown]
  - Weight decreased [Unknown]
  - Laryngeal cancer [Unknown]
